FAERS Safety Report 14070555 (Version 5)
Quarter: 2017Q4

REPORT INFORMATION
  Report Type: Report from Study
  Country: US (occurrence: US)
  Receive Date: 20171011
  Receipt Date: 20171205
  Transmission Date: 20180321
  Serious: Yes (Hospitalization, Other)
  Sender: FDA-Public Use
  Company Number: US-GILEAD-2017-0297593

PATIENT
  Age: 67 Year
  Sex: Male
  Weight: 123.81 kg

DRUGS (20)
  1. LIPITOR [Concomitant]
     Active Substance: ATORVASTATIN CALCIUM
  2. CLOPIDOGREL [Concomitant]
     Active Substance: CLOPIDOGREL BISULFATE
  3. ATORVASTATIN [Concomitant]
     Active Substance: ATORVASTATIN
  4. PREDNISONE. [Concomitant]
     Active Substance: PREDNISONE
  5. AMBRISENTAN [Suspect]
     Active Substance: AMBRISENTAN
     Indication: PRODUCT USED FOR UNKNOWN INDICATION
     Dosage: 10 MG, QD
     Route: 048
     Dates: start: 20170301
  6. TOPROL XL [Concomitant]
     Active Substance: METOPROLOL SUCCINATE
  7. LASIX [Concomitant]
     Active Substance: FUROSEMIDE
  8. REVATIO [Concomitant]
     Active Substance: SILDENAFIL CITRATE
  9. NORVASC [Concomitant]
     Active Substance: AMLODIPINE BESYLATE
  10. VALSARTAN. [Concomitant]
     Active Substance: VALSARTAN
  11. SILDENAFIL. [Concomitant]
     Active Substance: SILDENAFIL
  12. PLAVIX [Concomitant]
     Active Substance: CLOPIDOGREL BISULFATE
  13. PROTONIX                           /00661201/ [Concomitant]
     Active Substance: OMEPRAZOLE
  14. SYMBICORT [Concomitant]
     Active Substance: BUDESONIDE\FORMOTEROL FUMARATE DIHYDRATE
  15. DEFINITY [Concomitant]
     Active Substance: PERFLUTREN
  16. LUMASON [Concomitant]
     Active Substance: SULFUR HEXAFLUORIDE
  17. AMBRISENTAN [Suspect]
     Active Substance: AMBRISENTAN
     Dosage: 5 MG, QD
     Route: 065
     Dates: start: 201703
  18. AMIDATE [Concomitant]
     Active Substance: ETOMIDATE
  19. TYLENOL [Concomitant]
     Active Substance: ACETAMINOPHEN
  20. CELLCEPT [Concomitant]
     Active Substance: MYCOPHENOLATE MOFETIL\MYCOPHENOLATE MOFETIL HYDROCHLORIDE

REACTIONS (4)
  - Atrial fibrillation [Not Recovered/Not Resolved]
  - Weight decreased [Recovering/Resolving]
  - Atrioventricular block complete [Recovered/Resolved]
  - Atypical pneumonia [Recovering/Resolving]
